FAERS Safety Report 4634362-7 (Version None)
Quarter: 2005Q3

REPORT INFORMATION
  Report Type: 
  Country: None (occurrence: None)
  Receive Date: 20050411
  Receipt Date: 20040907
  Transmission Date: 20060218
  Serious: Yes (Hospitalization)
  Sender: FDA-Public Use
  Company Number: 2004041946

PATIENT
  Age: 45 Year
  Sex: Female

DRUGS (2)
  1. ZIPRASIDONE                           (ZIPRASIDONE) [Suspect]
     Indication: SCHIZOPHRENIA
     Dosage: 80 MG (40 MG, 2 IN 1 D), ORAL
     Route: 048
  2. ZOPICLONE (ZOPICLONE) [Concomitant]

REACTIONS (4)
  - FEELING ABNORMAL [None]
  - IMPULSIVE BEHAVIOUR [None]
  - INSOMNIA [None]
  - OVERDOSE [None]
